FAERS Safety Report 18621279 (Version 1)
Quarter: 2020Q4

REPORT INFORMATION
  Report Type: Report from Study
  Country: DE (occurrence: DE)
  Receive Date: 20201215
  Receipt Date: 20201215
  Transmission Date: 20210114
  Serious: Yes (Death, Other)
  Sender: FDA-Public Use
  Company Number: DE-PFIZER INC-2020468425

PATIENT
  Age: 5 Year
  Sex: Male

DRUGS (6)
  1. ARA-C [Suspect]
     Active Substance: CYTARABINE
     Indication: ACUTE UNDIFFERENTIATED LEUKAEMIA
  2. METHOTREXATE SODIUM. [Suspect]
     Active Substance: METHOTREXATE SODIUM
     Indication: ACUTE UNDIFFERENTIATED LEUKAEMIA
     Dosage: UNK
  3. THIOGUANINE [Suspect]
     Active Substance: THIOGUANINE
     Indication: ACUTE UNDIFFERENTIATED LEUKAEMIA
  4. CYCLOPHOSPHAMIDE. [Suspect]
     Active Substance: CYCLOPHOSPHAMIDE
     Indication: ACUTE UNDIFFERENTIATED LEUKAEMIA
  5. 6-MERCAPTOPURINE MONOHYDRATE [Suspect]
     Active Substance: MERCAPTOPURINE
     Indication: ACUTE UNDIFFERENTIATED LEUKAEMIA
  6. TENIPOSIDE. [Suspect]
     Active Substance: TENIPOSIDE
     Indication: ACUTE UNDIFFERENTIATED LEUKAEMIA

REACTIONS (3)
  - Hepatitis B [Fatal]
  - Hepatic failure [Fatal]
  - Coma hepatic [Fatal]
